FAERS Safety Report 8247205-X (Version None)
Quarter: 2012Q1

REPORT INFORMATION
  Report Type: 
  Country: None (occurrence: None)
  Receive Date: 20120329
  Receipt Date: 20120329
  Transmission Date: 20120608
  Serious: No
  Sender: FDA-Public Use
  Company Number: None

PATIENT
  Age: 20 Year
  Sex: Female

DRUGS (1)
  1. ISONIAZID [Suspect]
     Dates: start: 20090904, end: 20100210

REACTIONS (3)
  - OVERDOSE [None]
  - PARENT-CHILD PROBLEM [None]
  - CONVULSION [None]
